FAERS Safety Report 19098760 (Version 1)
Quarter: 2021Q2

REPORT INFORMATION
  Report Type: Report from Study
  Country: EG (occurrence: EG)
  Receive Date: 20210406
  Receipt Date: 20210406
  Transmission Date: 20210717
  Serious: Yes (Disabling, Other)
  Sender: FDA-Public Use
  Company Number: NVSC2021EG074122

PATIENT
  Age: 30 Year
  Sex: Female

DRUGS (2)
  1. COSENTYX [Suspect]
     Active Substance: SECUKINUMAB
     Indication: RASH
  2. COSENTYX [Suspect]
     Active Substance: SECUKINUMAB
     Indication: PSORIATIC ARTHROPATHY
     Dosage: 300 MG, QMO (2 PENS)
     Route: 065
     Dates: start: 201901

REACTIONS (8)
  - Peripheral swelling [Unknown]
  - Ear pain [Unknown]
  - Psoriasis [Unknown]
  - Product dose omission issue [Not Recovered/Not Resolved]
  - Back pain [Unknown]
  - Pain in jaw [Unknown]
  - Movement disorder [Unknown]
  - Joint swelling [Unknown]

NARRATIVE: CASE EVENT DATE: 20190901
